FAERS Safety Report 20945716 (Version 2)
Quarter: 2022Q2

REPORT INFORMATION
  Report Type: Spontaneous
  Country: CN (occurrence: None)
  Receive Date: 20220610
  Receipt Date: 20220617
  Transmission Date: 20220721
  Serious: Yes (Death)
  Sender: FDA-Public Use
  Company Number: 2022A211044

PATIENT
  Age: 40 Year
  Sex: Female

DRUGS (1)
  1. FASLODEX [Suspect]
     Active Substance: FULVESTRANT
     Indication: Breast cancer female
     Dosage: ONE INJECTION ON THE LEFT BUTTOCK AND ONE INJECTION ON THE RIGHT BUTTOCK
     Route: 030

REACTIONS (2)
  - Liver injury [Fatal]
  - Hepatic function abnormal [Fatal]
